FAERS Safety Report 8954331 (Version 1)
Quarter: 2012Q4

REPORT INFORMATION
  Report Type: Spontaneous
  Country: AR (occurrence: None)
  Receive Date: 20121130
  Receipt Date: 20121130
  Transmission Date: 20130627
  Serious: No
  Sender: FDA-Public Use
  Company Number: ACET20120028

PATIENT
  Age: 52 Year
  Sex: Female

DRUGS (3)
  1. PARACETAMOL [Suspect]
     Indication: PRODUCT USED FOR UNKNOWN INDICATION
     Dosage: UNKNOWN, UNKNOWN, Oral
  2. ASPIRIN (ACETYLSALICYLIC ACID) (TABLETS) [Suspect]
  3. DICLOFENAC (DICLOFENAC) (TABLETS) [Suspect]
     Dosage: UNKNOWN, UNKNOWN, Oral

REACTIONS (2)
  - Angioedema [None]
  - Drug hypersensitivity [None]
